FAERS Safety Report 20744200 (Version 1)
Quarter: 2022Q2

REPORT INFORMATION
  Report Type: Spontaneous
  Country: US (occurrence: None)
  Receive Date: 20220422
  Receipt Date: 20220422
  Transmission Date: 20220721
  Serious: Yes (Hospitalization)
  Sender: FDA-Public Use
  Company Number: None

PATIENT
  Sex: Male
  Weight: 106.1 kg

DRUGS (16)
  1. PREVYMIS [Suspect]
     Active Substance: LETERMOVIR
     Indication: Acute myeloid leukaemia (in remission)
     Dosage: FREQUENCY : DAILY;?
     Route: 048
     Dates: start: 202202
  2. ACETAMINOPHEN [Concomitant]
     Active Substance: ACETAMINOPHEN
  3. ACYCLOVIR [Concomitant]
     Active Substance: ACYCLOVIR
  4. CATHFLO ACTIVASE [Concomitant]
  5. POSACONAZOLE [Concomitant]
     Active Substance: POSACONAZOLE
  6. CEFTRIAXONE SODIUM [Concomitant]
     Active Substance: CEFTRIAXONE SODIUM
  7. POTASSIUM CHLORIDE [Concomitant]
     Active Substance: POTASSIUM CHLORIDE
  8. DEXTROSE [Concomitant]
     Active Substance: DEXTROSE
  9. PREDNISONE [Concomitant]
     Active Substance: PREDNISONE
  10. Pro-Stat [Concomitant]
  11. INSULIN LISPRO [Concomitant]
     Active Substance: INSULIN LISPRO
  12. RENVELA [Concomitant]
     Active Substance: SEVELAMER CARBONATE
  13. LANTUS [Concomitant]
     Active Substance: INSULIN GLARGINE
  14. MAGNESIUM SULFATE [Concomitant]
     Active Substance: MAGNESIUM SULFATE
  15. Multivitamin Men [Concomitant]
  16. PANTOPRAZOLE SODIUM [Concomitant]
     Active Substance: PANTOPRAZOLE SODIUM

REACTIONS (1)
  - Back disorder [None]
